FAERS Safety Report 8220203-8 (Version None)
Quarter: 2012Q1

REPORT INFORMATION
  Report Type: 
  Country: None (occurrence: None)
  Receive Date: 20120320
  Receipt Date: 20120312
  Transmission Date: 20120608
  Serious: Yes (Other)
  Sender: FDA-Public Use
  Company Number: US-BAYER-200940508NA

PATIENT
  Age: 22 Year
  Sex: Male
  Weight: 77 kg

DRUGS (30)
  1. COREG [Concomitant]
     Dosage: 25MG
     Route: 048
  2. BUMEX [Concomitant]
     Dosage: 1MG
     Route: 048
  3. PROTAMINE SULFATE [Concomitant]
     Dosage: 400MG
     Route: 042
     Dates: start: 19991104
  4. FENTANYL [Concomitant]
     Dosage: 3MG
     Route: 042
     Dates: start: 19991104
  5. ASPIRIN [Concomitant]
     Dosage: 325 MG, QD
     Route: 048
  6. WARFARIN SODIUM [Concomitant]
     Dosage: 5MG
     Route: 048
  7. AMIODARONE HYDROCHLORIDE [Concomitant]
     Dosage: 400MG
     Route: 048
  8. FENTANYL [Concomitant]
     Dosage: UNK
     Dates: start: 20001105
  9. VANCOMYCIN [Concomitant]
     Dosage: UNK
     Dates: start: 20000728
  10. HEPARIN [Concomitant]
     Dosage: 30,000 UNITS
     Route: 042
     Dates: start: 19991104
  11. TRASYLOL [Suspect]
     Indication: HEART TRANSPLANT
     Dosage: LOADING DOSE: AMICAR @ 20CC/HR STARTED AT 08:30
  12. RED BLOOD CELLS [Concomitant]
     Dosage: UNK
     Dates: start: 19991104
  13. PLATELETS [Concomitant]
     Dosage: UNK
     Dates: start: 19991105
  14. PRAVACHOL [Concomitant]
     Dosage: 40MG
     Route: 048
  15. DIGOXIN [Concomitant]
     Dosage: 0.0625MG
     Route: 048
  16. LEVOFLOXACIN [Concomitant]
     Dosage: UNK
     Dates: start: 20000728
  17. FRESH FROZEN PLASMA [Concomitant]
     Dosage: UNK
     Dates: start: 19991104
  18. LEVOFLOXACIN [Concomitant]
     Dosage: 150 MG, UNK
     Route: 048
  19. AMICAR [Concomitant]
     Indication: VENTRICULAR ASSIST DEVICE INSERTION
     Dosage: 10GRAM
     Route: 042
     Dates: start: 19991104
  20. PREVACID [Concomitant]
     Dosage: 30MG
     Route: 048
  21. ZESTRIL [Concomitant]
     Dosage: 10 MG, QD
     Route: 048
  22. MANNITOL [Concomitant]
     Dosage: UNK
     Dates: start: 20001105
  23. LASIX [Concomitant]
     Dosage: 80MG
     Dates: start: 20001105
  24. AMICAR [Concomitant]
     Dosage: AMICAR @ 20CC/HR STARTED AT 0830
     Dates: start: 19991104
  25. MILRINONE [Concomitant]
     Dosage: TITRATED
     Route: 042
     Dates: start: 19991104
  26. TRASYLOL [Suspect]
     Indication: VENTRICULAR ASSIST DEVICE INSERTION
     Dosage: UNK
     Route: 042
     Dates: start: 19991104, end: 19991104
  27. TRASYLOL [Suspect]
     Indication: RENAL TRANSPLANT
     Dosage: 50 ML, Q1HR
     Route: 042
     Dates: start: 20001104, end: 20001104
  28. VANCOMYCIN [Concomitant]
     Dosage: UNK
     Dates: start: 20001105
  29. DOBUTAMINE HCL [Concomitant]
     Dosage: TITRATED
     Route: 042
     Dates: start: 19991104
  30. EPINEPHRINE [Concomitant]
     Dosage: TITRATED
     Route: 042
     Dates: start: 19991104

REACTIONS (12)
  - EMOTIONAL DISTRESS [None]
  - PSYCHOLOGICAL TRAUMA [None]
  - ANXIETY [None]
  - UNEVALUABLE EVENT [None]
  - PAIN [None]
  - FEAR [None]
  - RENAL INJURY [None]
  - INJURY [None]
  - STRESS [None]
  - ANHEDONIA [None]
  - RENAL FAILURE [None]
  - RENAL IMPAIRMENT [None]
